FAERS Safety Report 24031013 (Version 1)
Quarter: 2024Q2

REPORT INFORMATION
  Report Type: Spontaneous
  Country: IT (occurrence: IT)
  Receive Date: 20240628
  Receipt Date: 20240628
  Transmission Date: 20240716
  Serious: Yes (Other)
  Sender: FDA-Public Use
  Company Number: IT-WOODWARD-2024-IT-000072

PATIENT
  Age: 60 Year
  Sex: Female

DRUGS (1)
  1. RABEPRAZOLE SODIUM [Suspect]
     Active Substance: RABEPRAZOLE SODIUM
     Indication: Gastrooesophageal reflux disease
     Dosage: 20.0 MILLIGRAM(S) (20 MILLIGRAM(S), 1 IN 24 HOUR)
     Route: 048
     Dates: start: 20230113, end: 20230114

REACTIONS (5)
  - Extrasystoles [Unknown]
  - Dyspepsia [Unknown]
  - Tachycardia [Unknown]
  - Abdominal pain upper [Unknown]
  - Gastrooesophageal reflux disease [Unknown]

NARRATIVE: CASE EVENT DATE: 20230114
